FAERS Safety Report 9283042 (Version 1)
Quarter: 2013Q2

REPORT INFORMATION
  Report Type: Spontaneous
  Country: US (occurrence: US)
  Receive Date: 20130510
  Receipt Date: 20130510
  Transmission Date: 20140414
  Serious: No
  Sender: FDA-Public Use
  Company Number: US-GLAXOSMITHKLINE-A0974703A

PATIENT
  Age: 48 Year
  Sex: Female
  Weight: 73 kg

DRUGS (10)
  1. TYKERB [Suspect]
     Indication: BREAST CANCER
     Dosage: 250MG PER DAY
     Route: 048
  2. LETROZOLE [Concomitant]
     Route: 048
  3. HERCEPTIN [Concomitant]
     Route: 042
  4. KEPPRA [Concomitant]
     Route: 048
  5. ATIVAN [Concomitant]
     Route: 048
  6. RITALIN [Concomitant]
     Route: 048
  7. HYDROMORPHONE [Concomitant]
     Route: 048
  8. KYTRIL [Concomitant]
     Route: 048
  9. NAPROSYN [Concomitant]
     Route: 048
  10. MAALOX [Concomitant]
     Route: 048

REACTIONS (8)
  - Nausea [Not Recovered/Not Resolved]
  - Diarrhoea [Unknown]
  - Constipation [Unknown]
  - Abdominal pain [Unknown]
  - Fatigue [Unknown]
  - Dizziness [Unknown]
  - Rash [Unknown]
  - Pruritus [Unknown]
